FAERS Safety Report 14131453 (Version 3)
Quarter: 2018Q1

REPORT INFORMATION
  Report Type: Report from Study
  Country: US (occurrence: US)
  Receive Date: 20171026
  Receipt Date: 20180125
  Transmission Date: 20180508
  Serious: No
  Sender: FDA-Public Use
  Company Number: US-AMGEN-USASL2017129949

PATIENT
  Age: 67 Year
  Sex: Male

DRUGS (1)
  1. REPATHA [Suspect]
     Active Substance: EVOLOCUMAB
     Indication: HYPERCHOLESTEROLAEMIA
     Dosage: 140 MG, Q2WK(TWICE IN A MONTH)
     Route: 065

REACTIONS (7)
  - Cough [Unknown]
  - Back pain [Unknown]
  - Gastroenteritis [Unknown]
  - Arthropod bite [Recovering/Resolving]
  - Respiratory tract congestion [Unknown]
  - Fatigue [Unknown]
  - Swelling [Recovering/Resolving]
